FAERS Safety Report 17314089 (Version 1)
Quarter: 2020Q1

REPORT INFORMATION
  Report Type: Spontaneous
  Country: US (occurrence: US)
  Receive Date: 20200107
  Receipt Date: 20200107
  Transmission Date: 20200409
  Serious: Yes (Other)
  Sender: FDA-Public Use
  Company Number: None

PATIENT
  Age: 84 Year
  Sex: Female

DRUGS (20)
  1. ROSUVASTATIN CALCIUM. [Suspect]
     Active Substance: ROSUVASTATIN CALCIUM
     Indication: BLOOD TRIGLYCERIDES INCREASED
     Dosage: ?          QUANTITY:ONE PILL ;?
     Route: 048
  2. IRON 142 (45FE)MG [Concomitant]
  3. BILBERRY [Concomitant]
     Active Substance: BILBERRY
  4. C0Q10 [Concomitant]
  5. TBCR [Concomitant]
  6. HEALTHY EYES WITH LUTEIN [Concomitant]
  7. HYOSCYAMINE 0.125MG (AS NEEDED) [Concomitant]
  8. LEVOTHYROXINE 100MCG [Concomitant]
     Active Substance: LEVOTHYROXINE
  9. TRIAMTERENE/HCTZ 37.5/25 [Concomitant]
     Active Substance: HYDROCHLOROTHIAZIDE\TRIAMTERENE
  10. C [Concomitant]
  11. CALCIUM [Concomitant]
     Active Substance: CALCIUM
  12. VITAMIN B12 [Concomitant]
     Active Substance: CYANOCOBALAMIN
  13. ELIQUIS [Concomitant]
     Active Substance: APIXABAN
  14. LORAZEPAM 1MG [Concomitant]
     Active Substance: LORAZEPAM
  15. MAGNESIUM [Concomitant]
     Active Substance: MAGNESIUM
  16. E [Concomitant]
  17. ZINC. [Concomitant]
     Active Substance: ZINC
  18. B6 [Concomitant]
     Active Substance: PYRIDOXINE HYDROCHLORIDE
  19. METOPROLOL TARTRATE 100MG 2 X DAILY [Concomitant]
  20. 81 MG ASPIRIN [Concomitant]
     Active Substance: ASPIRIN

REACTIONS (3)
  - Headache [None]
  - Abdominal pain upper [None]
  - Liver function test abnormal [None]
